FAERS Safety Report 6916931-4 (Version None)
Quarter: 2010Q3

REPORT INFORMATION
  Report Type: 
  Country: None (occurrence: None)
  Receive Date: 20100809
  Receipt Date: 20100809
  Transmission Date: 20110219
  Serious: No
  Sender: FDA-Public Use
  Company Number: None

PATIENT
  Age: 80 Year
  Sex: Female
  Weight: 58.9676 kg

DRUGS (1)
  1. ABATACEPT 500MG BRISTOL-MYERS SQUIBB [Suspect]
     Indication: RHEUMATOID ARTHRITIS
     Dosage: 500MG Q 4 WEEKS IV
     Route: 042

REACTIONS (2)
  - PEMPHIGUS [None]
  - STEVENS-JOHNSON SYNDROME [None]
